FAERS Safety Report 21102562 (Version 1)
Quarter: 2022Q3

REPORT INFORMATION
  Report Type: Spontaneous
  Country: US (occurrence: US)
  Receive Date: 20220719
  Receipt Date: 20220719
  Transmission Date: 20221027
  Serious: No
  Sender: FDA-Public Use
  Company Number: US-JNJFOC-20220715385

PATIENT
  Sex: Female

DRUGS (1)
  1. SPRAVATO [Suspect]
     Active Substance: ESKETAMINE
     Indication: Product used for unknown indication

REACTIONS (6)
  - Malaise [Unknown]
  - Somnolence [Unknown]
  - Limb discomfort [Unknown]
  - Hypoaesthesia [Unknown]
  - Dissociation [Unknown]
  - Crying [Unknown]

NARRATIVE: CASE EVENT DATE: 20220707
